FAERS Safety Report 6700572-8 (Version None)
Quarter: 2010Q2

REPORT INFORMATION
  Report Type: 
  Country: None (occurrence: None)
  Receive Date: 20100428
  Receipt Date: 20100420
  Transmission Date: 20101027
  Serious: Yes (Hospitalization)
  Sender: FDA-Public Use
  Company Number: B0650152A

PATIENT
  Sex: Male

DRUGS (5)
  1. DILATREND [Suspect]
     Dosage: 12.5MG PER DAY
     Route: 048
     Dates: start: 20091202, end: 20100104
  2. POTASSIUM PERCHLORATE SOLUTION [Suspect]
     Indication: HYPERTHYROIDISM
     Dosage: 800MG PER DAY
     Route: 065
     Dates: start: 20091231, end: 20100126
  3. RAMIPRIL [Concomitant]
     Dates: start: 20000101, end: 20100115
  4. VALPRESSION [Concomitant]
     Dates: start: 20000101, end: 20100115
  5. DELTACORTENE [Concomitant]
     Dates: start: 20091220, end: 20100204

REACTIONS (1)
  - STEVENS-JOHNSON SYNDROME [None]
